FAERS Safety Report 7473172-2 (Version None)
Quarter: 2011Q2

REPORT INFORMATION
  Report Type: 
  Country: None (occurrence: None)
  Receive Date: 20110511
  Receipt Date: 20110503
  Transmission Date: 20111010
  Serious: Yes (Hospitalization)
  Sender: FDA-Public Use
  Company Number: A0889301A

PATIENT
  Sex: Female

DRUGS (7)
  1. LYRICA [Concomitant]
  2. PRILOSEC [Concomitant]
  3. SKELAXIN [Concomitant]
  4. AMBIEN [Concomitant]
  5. DARVOCET [Concomitant]
  6. LORTAB [Concomitant]
  7. AVANDIA [Suspect]
     Indication: DIABETES MELLITUS
     Dosage: 4MG PER DAY
     Route: 048
     Dates: start: 20060115, end: 20070115

REACTIONS (5)
  - ANKLE FRACTURE [None]
  - BONE DISORDER [None]
  - CARDIAC FAILURE CONGESTIVE [None]
  - FRACTURE [None]
  - CONTUSION [None]
